FAERS Safety Report 23738224 (Version 1)
Quarter: 2024Q2

REPORT INFORMATION
  Report Type: Spontaneous
  Country: KR (occurrence: KR)
  Receive Date: 20240412
  Receipt Date: 20240412
  Transmission Date: 20240716
  Serious: Yes (Other)
  Sender: FDA-Public Use
  Company Number: KR-BAYER-2024A052969

PATIENT
  Sex: Male
  Weight: 75 kg

DRUGS (4)
  1. XARELTO [Suspect]
     Active Substance: RIVAROXABAN
     Indication: Product used for unknown indication
     Dosage: 1 DF, QD
     Route: 048
     Dates: start: 20230119, end: 20230419
  2. VALSARTAN [Suspect]
     Active Substance: VALSARTAN
     Dosage: 1 DF, QD
     Dates: start: 20230119, end: 20230419
  3. BISOPROLOL FUMARATE [Suspect]
     Active Substance: BISOPROLOL FUMARATE
     Dosage: 1 DF, QD
     Dates: start: 20230119, end: 20230419
  4. ATORVASTATIN CALCIUM [Suspect]
     Active Substance: ATORVASTATIN CALCIUM
     Dosage: 1 DF, QD
     Dates: start: 20230119, end: 20230419

REACTIONS (1)
  - Dermatitis bullous [Recovered/Resolved with Sequelae]

NARRATIVE: CASE EVENT DATE: 20230121
